FAERS Safety Report 5032985-7 (Version None)
Quarter: 2006Q2

REPORT INFORMATION
  Report Type: 
  Country: None (occurrence: None)
  Receive Date: 20060620
  Receipt Date: 20060607
  Transmission Date: 20061013
  Serious: Yes (Death, Life-Threatening, Hospitalization, Other)
  Sender: FDA-Public Use
  Company Number: 200610549BWH

PATIENT
  Age: 46 Year
  Sex: Female
  Weight: 71.1 kg

DRUGS (20)
  1. SORAFENIB [Suspect]
     Indication: METASTATIC MALIGNANT MELANOMA
     Dosage: SEE IMAGE
     Route: 048
     Dates: start: 20060112, end: 20060125
  2. SORAFENIB [Suspect]
     Indication: METASTATIC MALIGNANT MELANOMA
     Dosage: SEE IMAGE
     Route: 048
     Dates: start: 20060201, end: 20060223
  3. DACARBAZINE [Suspect]
     Indication: METASTATIC MALIGNANT MELANOMA
     Dosage: ONCE, INTRAVENOUS
     Route: 042
     Dates: start: 20060111
  4. EFFEXOR [Concomitant]
  5. AVALIDE [Concomitant]
  6. COMPAZINE [Concomitant]
  7. VICODIN ES [Concomitant]
  8. DILAUDID [Concomitant]
  9. AQUABID DM [Concomitant]
  10. SENOKOT [SENNA ALEXANDRINA FRUIT] [Concomitant]
  11. ZOFRAN [Concomitant]
  12. K-DUR 10 [Concomitant]
  13. CIPRO [Concomitant]
  14. TOBRAMYCIN [Concomitant]
  15. VANCOMYCIN [Concomitant]
  16. DIFLUCAN [Concomitant]
  17. MORPHINE SULFATE [Concomitant]
  18. DECADRON [Concomitant]
  19. ACETAMINOPHEN AND HYDROCODONE BITARTRATE [Concomitant]
  20. LEUKINE [Concomitant]

REACTIONS (23)
  - ALANINE AMINOTRANSFERASE INCREASED [None]
  - ASPARTATE AMINOTRANSFERASE INCREASED [None]
  - BLOOD SODIUM DECREASED [None]
  - CEREBRAL HAEMORRHAGE [None]
  - DECREASED APPETITE [None]
  - DEPRESSED LEVEL OF CONSCIOUSNESS [None]
  - DISEASE PROGRESSION [None]
  - ELECTROLYTE IMBALANCE [None]
  - EPISTAXIS [None]
  - EYE PAIN [None]
  - HAEMOGLOBIN DECREASED [None]
  - HAEMORRHAGIC DIATHESIS [None]
  - HEPATORENAL SYNDROME [None]
  - HYPERSPLENISM [None]
  - INTRACRANIAL PRESSURE INCREASED [None]
  - LETHARGY [None]
  - METASTASES TO CENTRAL NERVOUS SYSTEM [None]
  - NEUTROPENIA [None]
  - RENAL FAILURE [None]
  - THROMBOCYTOPENIA [None]
  - VOMITING [None]
  - WHITE BLOOD CELL COUNT DECREASED [None]
  - WHITE BLOOD CELL COUNT INCREASED [None]
